FAERS Safety Report 9319657 (Version 1)
Quarter: 2013Q1

REPORT INFORMATION
  Report Type: Spontaneous
  Country: FR (occurrence: None)
  Receive Date: 20121129
  Receipt Date: 20121129
  Transmission Date: 20140127
  Serious: Yes (Hospitalization)
  Sender: FDA-Public Use
  Company Number: 2012SA067183

PATIENT
  Age: 76 Year
  Sex: Male

DRUGS (10)
  1. LASILIX SPECIAL (FUROSEMITE) / ORAL/TABLET/ 500 MILLIGRAM (S) [Suspect]
     Indication: CARDIAC FAILURE
     Route: 048
     Dates: end: 20120612
  2. CORDARONE (AMIODARONE HYDROCHLORIDE)/ORAL/TABLET/200 MILLIGRAMS(S) [Suspect]
     Indication: ATRIAL FIBRILLATION
     Route: 048
  3. DIGOXIN [Suspect]
     Indication: ATRIAL FIBRILLATION
     Route: 048
     Dates: start: 201102, end: 20120613
  4. ALDACTONE (SPIRONOLACTONE) [Suspect]
     Indication: PRODUCT USED FOR UNKNOWN INDICATION
     Route: 048
     Dates: end: 20120618
  5. PREVISCAN [Concomitant]
  6. LEVOTHYROX [Concomitant]
  7. ROSUVASTATIN [Concomitant]
  8. CALCIUM [Concomitant]
  9. DIFFU K [Concomitant]
  10. EUPANTOL [Concomitant]

REACTIONS (2)
  - Cardioactive drug level increased [None]
  - Cardiac failure [None]
